FAERS Safety Report 7930312-6 (Version None)
Quarter: 2011Q4

REPORT INFORMATION
  Report Type: 
  Country: None (occurrence: None)
  Receive Date: 20111121
  Receipt Date: 20111117
  Transmission Date: 20120403
  Serious: Yes (Hospitalization)
  Sender: FDA-Public Use
  Company Number: US-ABBOTT-11P-163-0867584-00

PATIENT
  Sex: Female
  Weight: 61.29 kg

DRUGS (6)
  1. OTC VITAMINS [Concomitant]
     Indication: VITAMIN SUPPLEMENTATION
  2. HUMIRA [Suspect]
     Indication: CROHN'S DISEASE
     Route: 058
     Dates: start: 20101001, end: 20110901
  3. IRON [Concomitant]
     Indication: ANAEMIA
  4. BIOTIN [Concomitant]
     Indication: VITAMIN SUPPLEMENTATION
  5. ROGAINE [Concomitant]
     Indication: ALOPECIA
  6. HUMIRA [Suspect]
     Route: 058
     Dates: start: 20111001

REACTIONS (3)
  - CROHN'S DISEASE [None]
  - INTESTINAL OBSTRUCTION [None]
  - DRUG INEFFECTIVE [None]
